FAERS Safety Report 8596537-4 (Version None)
Quarter: 2012Q3

REPORT INFORMATION
  Report Type: 
  Country: None (occurrence: None)
  Receive Date: 20120806
  Receipt Date: 20120806
  Transmission Date: 20120928
  Serious: Yes (Life-Threatening, Hospitalization)
  Sender: FDA-Public Use
  Company Number: None

PATIENT
  Age: 40 Year
  Sex: Male
  Weight: 93.2 kg

DRUGS (2)
  1. REGLAN [Concomitant]
  2. METOCLOPRAMIDE [Suspect]
     Dosage: 10 MG QID PO
     Route: 048
     Dates: start: 20120731, end: 20120802

REACTIONS (7)
  - JAW DISORDER [None]
  - DYSTONIA [None]
  - EXTRAPYRAMIDAL DISORDER [None]
  - HYPERHIDROSIS [None]
  - CONFUSIONAL STATE [None]
  - MUSCLE TWITCHING [None]
  - STARING [None]
